FAERS Safety Report 9305226 (Version 2)
Quarter: 2013Q2

REPORT INFORMATION
  Report Type: Spontaneous
  Country: GB (occurrence: None)
  Receive Date: 20130327
  Receipt Date: 20130417
  Transmission Date: 20140414
  Serious: Yes (Death, Hospitalization)
  Sender: FDA-Public Use
  Company Number: SYM-2013-00498

PATIENT
  Age: 68 Year
  Sex: Male

DRUGS (13)
  1. 5-FU [Suspect]
     Indication: COLORECTAL CANCER METASTATIC
     Dosage: 400 MG/M2, EVERY CYCLE,
     Route: 040
     Dates: start: 20120928, end: 20120928
  2. AFLIBERCEPT [Suspect]
     Indication: COLORECTAL CANCER METASTATIC
     Dosage: 4 MG/KG, EVERY CYCLE, INTRAVENOUS (NOT OTHERWISE SPECIFIED)
     Route: 042
     Dates: start: 20120928, end: 20120928
  3. LEUCOVORIN [Suspect]
     Indication: COLORECTAL CANCER METASTATIC
     Dosage: EVERY CYCLE, INTRAVENOUS (NOT OTHERWISE SPECIFIED)
     Route: 042
     Dates: start: 20120928, end: 20120928
  4. IRINOTECAN [Suspect]
     Indication: COLORECTAL CANCER METASTATIC
     Dosage: 180 MG/M2, EVERY CYCLE, INTRAVENOUS (NOT OTHERWISE SPECIFIED)
     Route: 042
     Dates: start: 20120228, end: 20120928
  5. PARACETAMOL(PARACETAMOL)(UNKNOWN)(PARACETAMOL) [Concomitant]
  6. ORAMORPH(MORPHINE SULFATE PENTAHYDRATE)(UNKNOWN)(MORPHINE SULFATE [Concomitant]
  7. SIMVASTATIN(SIMVASTATIN) (UNKNOWN) [Concomitant]
  8. LANSOPRAZOLE (LANSOPRAZOLE)(UNKNOWN) (LANSOPRAZOLE) [Concomitant]
  9. METOCLOPRAMIDE(METOCLOPRAMIDE)(METOCLOPRAMID?E) [Concomitant]
  10. AZITHROMYCIN(AZITHROMYCIN)(AZITHROMYCIN) [Concomitant]
  11. MST(MORPHINE SULFATE)(MORPHINE SULFATE) [Concomitant]
  12. GABAPENTIN(GABAPENTIN)(GABAPENTIN) [Concomitant]
  13. DICLOFENAC(DICLOFENAC)(DICLOFENAC) [Concomitant]

REACTIONS (4)
  - Pneumonia aspiration [None]
  - Diarrhoea [None]
  - Vomiting [None]
  - Neutropenic infection [None]
